FAERS Safety Report 9940919 (Version 2)
Quarter: 2014Q1

REPORT INFORMATION
  Report Type: Spontaneous
  Country: US (occurrence: US)
  Receive Date: 20140303
  Receipt Date: 20140314
  Transmission Date: 20141002
  Serious: No
  Sender: FDA-Public Use
  Company Number: US-PFIZER INC-2014057002

PATIENT
  Age: 93 Year
  Sex: Female

DRUGS (3)
  1. LYRICA [Suspect]
     Dosage: 25 MG, 2X/DAY
     Route: 048
  2. LOTEMAX [Concomitant]
     Dosage: UNK
     Route: 047
  3. LOTRISONE [Concomitant]
     Dosage: UNK
     Route: 061

REACTIONS (1)
  - Hypoacusis [Unknown]
